FAERS Safety Report 13708195 (Version 2)
Quarter: 2017Q3

REPORT INFORMATION
  Report Type: Report from Study
  Country: US (occurrence: BR)
  Receive Date: 20170630
  Receipt Date: 20170829
  Transmission Date: 20171127
  Serious: Yes (Death, Hospitalization)
  Sender: FDA-Public Use
  Company Number: US-SUNOVION-2017SUN002747

PATIENT
  Age: 92 Year
  Sex: Female

DRUGS (1)
  1. GLYCOPYRROLATE. [Suspect]
     Active Substance: GLYCOPYRROLATE
     Indication: PRODUCT USED FOR UNKNOWN INDICATION
     Dosage: SEEBRI BREEZHALER (GLYCOPYRRONIUM BROMIDE) DRY POWDER INHALER, UNK
     Route: 055
     Dates: start: 2015, end: 201606

REACTIONS (2)
  - Disease progression [Fatal]
  - Emphysema [Fatal]
